FAERS Safety Report 4783953-1 (Version None)
Quarter: 2005Q3

REPORT INFORMATION
  Report Type: 
  Country: None (occurrence: None)
  Receive Date: 20050927
  Receipt Date: 20050729
  Transmission Date: 20060218
  Serious: No
  Sender: FDA-Public Use
  Company Number: USA0508104204

PATIENT
  Age: 12 Year
  Sex: Female
  Weight: 41 kg

DRUGS (3)
  1. STRATTERA [Suspect]
     Indication: ATTENTION DEFICIT/HYPERACTIVITY DISORDER
     Dosage: 25 MG DAY
     Dates: start: 20020101, end: 20020101
  2. ZYRTEC [Concomitant]
  3. FLUORIDE [Concomitant]

REACTIONS (2)
  - INSOMNIA [None]
  - STOMACH DISCOMFORT [None]
